FAERS Safety Report 22158211 (Version 1)
Quarter: 2023Q1

REPORT INFORMATION
  Report Type: Spontaneous
  Country: JP (occurrence: None)
  Receive Date: 20230331
  Receipt Date: 20230331
  Transmission Date: 20230417
  Serious: Yes (Hospitalization, Other)
  Sender: FDA-Public Use
  Company Number: 2023A069795

PATIENT
  Age: 80 Year
  Sex: Male

DRUGS (12)
  1. DAPAGLIFLOZIN [Suspect]
     Active Substance: DAPAGLIFLOZIN
     Indication: Chronic kidney disease
     Dosage: DOSE UNKNOWN
     Route: 048
     Dates: start: 20210814, end: 20221013
  2. DAPAGLIFLOZIN [Suspect]
     Active Substance: DAPAGLIFLOZIN
     Indication: Chronic kidney disease
     Dosage: DOSE UNKNOWN
     Route: 048
     Dates: start: 20221014, end: 20230305
  3. DAPRODUSTAT [Concomitant]
     Active Substance: DAPRODUSTAT
     Route: 048
  4. ESAXERENONE [Concomitant]
     Active Substance: ESAXERENONE
     Route: 048
  5. ELIQUIS [Concomitant]
     Active Substance: APIXABAN
     Route: 048
  6. FERROUS SULFATE [Concomitant]
     Active Substance: FERROUS SULFATE
     Route: 048
  7. ROSUVASTATIN [Concomitant]
     Active Substance: ROSUVASTATIN
     Route: 048
  8. ELDECALCITOL [Concomitant]
     Active Substance: ELDECALCITOL
     Route: 048
  9. CILNIDIPINE [Concomitant]
     Active Substance: CILNIDIPINE
     Route: 048
  10. CARVEDILOL [Concomitant]
     Active Substance: CARVEDILOL
     Route: 048
  11. PEMAFIBRATE [Concomitant]
     Active Substance: PEMAFIBRATE
     Route: 048
  12. TELMISARTAN [Concomitant]
     Active Substance: TELMISARTAN
     Route: 048

REACTIONS (3)
  - Dehydration [Recovered/Resolved]
  - Enterocolitis viral [Unknown]
  - Underdose [Unknown]

NARRATIVE: CASE EVENT DATE: 20230301
